FAERS Safety Report 20077731 (Version 1)
Quarter: 2021Q4

REPORT INFORMATION
  Report Type: Spontaneous
  Country: US (occurrence: US)
  Receive Date: 20211116
  Receipt Date: 20211116
  Transmission Date: 20220303
  Serious: No
  Sender: FDA-Public Use
  Company Number: US-BoehringerIngelheim-2021-BI-113922

PATIENT
  Age: 71 Year
  Sex: Female

DRUGS (3)
  1. GILOTRIF [Suspect]
     Active Substance: AFATINIB
     Indication: EGFR gene mutation
     Dosage: 40MG PO ONCE DAILY
     Route: 048
     Dates: start: 20200723, end: 20210913
  2. GILOTRIF [Suspect]
     Active Substance: AFATINIB
     Indication: Non-small cell lung cancer
  3. COVID-19 VACCINE [Concomitant]

REACTIONS (4)
  - Pleural effusion [Recovering/Resolving]
  - Rash [Unknown]
  - Diarrhoea [Recovered/Resolved]
  - Dermatitis acneiform [Recovered/Resolved]

NARRATIVE: CASE EVENT DATE: 20200701
